FAERS Safety Report 9252534 (Version 2)
Quarter: 2013Q2

REPORT INFORMATION
  Report Type: Spontaneous
  Country: US (occurrence: US)
  Receive Date: 20130424
  Receipt Date: 20130502
  Transmission Date: 20140414
  Serious: Yes (Death, Hospitalization)
  Sender: FDA-Public Use
  Company Number: US-B.I. PHARMACEUTICALS,INC./RIDGEFIELD-2013-BI-10325BP

PATIENT
  Age: 63 Year
  Sex: Male

DRUGS (6)
  1. TRADJENTA [Suspect]
     Indication: TYPE 2 DIABETES MELLITUS
     Dosage: 5 MG
     Route: 048
     Dates: start: 2012
  2. ISOSORBIDE [Concomitant]
  3. ATORVASTATIN [Concomitant]
  4. NEURONTIN [Concomitant]
     Dosage: 300 MG
  5. NORVASC [Concomitant]
     Dosage: 10 MG
  6. TORSEMIDE [Concomitant]
     Dosage: 20 MG

REACTIONS (1)
  - Lung neoplasm malignant [Fatal]
